FAERS Safety Report 9419654 (Version 1)
Quarter: 2013Q3

REPORT INFORMATION
  Report Type: Report from Study
  Country: AR (occurrence: AR)
  Receive Date: 20130725
  Receipt Date: 20130725
  Transmission Date: 20140515
  Serious: Yes (Other)
  Sender: FDA-Public Use
  Company Number: PHHY2013AR078933

PATIENT
  Sex: Female

DRUGS (1)
  1. DIOVAN D [Suspect]
     Indication: HYPERTENSION
     Dosage: 2 DF, (80 MG VALS/ 12,5 MG HYDRO) DAILY
     Route: 048

REACTIONS (1)
  - Intestinal polyp [Recovering/Resolving]
